FAERS Safety Report 17946854 (Version 2)
Quarter: 2020Q3

REPORT INFORMATION
  Report Type: Spontaneous
  Country: US (occurrence: US)
  Receive Date: 20200626
  Receipt Date: 20200813
  Transmission Date: 20201103
  Serious: No
  Sender: FDA-Public Use
  Company Number: US-AMGEN-USASP2020100734

PATIENT
  Age: 60 Year
  Sex: Female

DRUGS (1)
  1. PROLIA [Suspect]
     Active Substance: DENOSUMAB
     Indication: OSTEOPOROSIS POSTMENOPAUSAL
     Dosage: 50 MILLIGRAM, Q6MO
     Route: 065
     Dates: start: 2014, end: 2015

REACTIONS (3)
  - Tooth fracture [Recovered/Resolved]
  - Off label use [Unknown]
  - Toothache [Unknown]

NARRATIVE: CASE EVENT DATE: 2014
